FAERS Safety Report 8430560-5 (Version None)
Quarter: 2012Q2

REPORT INFORMATION
  Report Type: 
  Country: None (occurrence: None)
  Receive Date: 20120612
  Receipt Date: 20120524
  Transmission Date: 20120825
  Serious: Yes (Life-Threatening, Hospitalization)
  Sender: FDA-Public Use
  Company Number: JP-GLAXOSMITHKLINE-B0804437A

PATIENT
  Sex: Female

DRUGS (8)
  1. LAMICTAL [Suspect]
     Indication: BIPOLAR II DISORDER
     Dosage: 25MG PER DAY
     Route: 048
     Dates: start: 20120507, end: 20120523
  2. DOGMATYL [Concomitant]
     Indication: BIPOLAR II DISORDER
     Route: 048
  3. DEPAKENE [Suspect]
     Indication: BIPOLAR II DISORDER
     Dosage: 600MG PER DAY
     Route: 048
  4. DESYREL [Concomitant]
     Indication: BIPOLAR II DISORDER
     Dosage: 50MG PER DAY
     Route: 048
  5. MAGMITT [Concomitant]
     Indication: CONSTIPATION
     Dosage: 1500MG PER DAY
     Route: 048
  6. CLONAZEPAM [Concomitant]
     Indication: BIPOLAR II DISORDER
     Dosage: 1MG PER DAY
     Route: 048
  7. RISPERDAL [Concomitant]
     Indication: BIPOLAR II DISORDER
     Route: 048
  8. PURSENNID [Concomitant]
     Indication: CONSTIPATION
     Dosage: 24MG PER DAY
     Route: 048

REACTIONS (24)
  - VIRAL INFECTION [None]
  - BLOOD ALKALINE PHOSPHATASE INCREASED [None]
  - PYREXIA [None]
  - HEPATIC FUNCTION ABNORMAL [None]
  - DISSEMINATED INTRAVASCULAR COAGULATION [None]
  - MENINGITIS ASEPTIC [None]
  - BLOOD CHOLINESTERASE DECREASED [None]
  - HEPATIC ENZYME INCREASED [None]
  - PROTEIN TOTAL DECREASED [None]
  - ALANINE AMINOTRANSFERASE INCREASED [None]
  - DRUG ERUPTION [None]
  - BLOOD FIBRINOGEN DECREASED [None]
  - FIBRIN D DIMER INCREASED [None]
  - VARICELLA VIRUS TEST POSITIVE [None]
  - FIBRIN DEGRADATION PRODUCTS INCREASED [None]
  - PLATELET COUNT DECREASED [None]
  - BLOOD ALBUMIN DECREASED [None]
  - BLOOD LACTATE DEHYDROGENASE INCREASED [None]
  - LYMPHADENOPATHY [None]
  - C-REACTIVE PROTEIN INCREASED [None]
  - LEUCINE AMINOPEPTIDASE INCREASED [None]
  - HERPES SIMPLEX SEROLOGY POSITIVE [None]
  - ASPARTATE AMINOTRANSFERASE INCREASED [None]
  - LOCAL SWELLING [None]
